FAERS Safety Report 4431669-3 (Version None)
Quarter: 2004Q3

REPORT INFORMATION
  Report Type: 
  Country: None (occurrence: None)
  Receive Date: 20040721
  Receipt Date: 20040603
  Transmission Date: 20050211
  Serious: Yes (Other)
  Sender: FDA-Public Use
  Company Number: 2004027892

PATIENT
  Sex: Female
  Weight: 63.5036 kg

DRUGS (1)
  1. RELPAX [Suspect]
     Indication: MIGRAINE
     Dates: start: 20030101

REACTIONS (1)
  - PAIN [None]
